FAERS Safety Report 5006283-1 (Version None)
Quarter: 2006Q2

REPORT INFORMATION
  Report Type: 
  Country: None (occurrence: None)
  Receive Date: 20060519
  Receipt Date: 20060508
  Transmission Date: 20061013
  Serious: Yes (Other)
  Sender: FDA-Public Use
  Company Number: PHEH2006US06000

PATIENT
  Age: 32 Year
  Sex: Female

DRUGS (1)
  1. LAMISIL [Suspect]
     Indication: NAIL TINEA
     Dosage: 250 MG, QD
     Route: 048
     Dates: start: 20060425, end: 20060503

REACTIONS (10)
  - ASTHENOPIA [None]
  - DRY EYE [None]
  - EYE IRRITATION [None]
  - OCULAR HYPERAEMIA [None]
  - OCULAR ICTERUS [None]
  - PANIC ATTACK [None]
  - PHARYNGOLARYNGEAL PAIN [None]
  - SINUS DISORDER [None]
  - VISION BLURRED [None]
  - VISUAL DISTURBANCE [None]
